FAERS Safety Report 7832992-2 (Version None)
Quarter: 2011Q4

REPORT INFORMATION
  Report Type: 
  Country: None (occurrence: None)
  Receive Date: 20111024
  Receipt Date: 20111012
  Transmission Date: 20120403
  Serious: No
  Sender: FDA-Public Use
  Company Number: KR-JNJFOC-20111007179

PATIENT
  Age: 5 Decade
  Sex: Male

DRUGS (2)
  1. DURAGESIC-100 [Suspect]
     Dosage: HALF A PATCH OF 50 UG/HR
     Route: 062
  2. DURAGESIC-100 [Suspect]
     Indication: PAIN MANAGEMENT
     Route: 062

REACTIONS (2)
  - DRUG ADMINISTRATION ERROR [None]
  - HYPERHIDROSIS [None]
